FAERS Safety Report 10132696 (Version 1)
Quarter: 2014Q2

REPORT INFORMATION
  Report Type: Spontaneous
  Country: US (occurrence: US)
  Receive Date: 20140428
  Receipt Date: 20140428
  Transmission Date: 20141212
  Serious: No
  Sender: FDA-Public Use
  Company Number: US-MALLINCKRODT-T201304446

PATIENT
  Age: 67 Year
  Sex: Male
  Weight: 91.61 kg

DRUGS (12)
  1. HYDROCODONE/ACETAMINOPHEN [Suspect]
     Indication: CERVICOGENIC HEADACHE
     Dosage: 10/500MG, 1 TABLET Q8H, UP TO 3 QD
     Route: 048
     Dates: start: 201309
  2. HYDROCODONE W/ACETAMINOPHEN [Concomitant]
     Indication: CERVICOGENIC HEADACHE
     Dosage: 7.5/500MG, Q8H
     Route: 048
     Dates: start: 2010, end: 201309
  3. PIOGLITAZONE [Concomitant]
     Indication: PRODUCT USED FOR UNKNOWN INDICATION
     Dosage: 15 MG, UNK
  4. VENLAFAXINE [Concomitant]
     Indication: DEPRESSION
     Dosage: 75 MG, QD
  5. CRESTOR [Concomitant]
     Indication: BLOOD CHOLESTEROL
     Dosage: 10 MG, QD
  6. CARVEDILOL [Concomitant]
     Dosage: 6.25 MG, BID
  7. ALPRAZOLAM [Concomitant]
     Indication: ANXIETY
     Dosage: 5 MG, QD
  8. QUINAPRIL [Concomitant]
     Indication: PRODUCT USED FOR UNKNOWN INDICATION
     Dosage: 10 MG, UNK
  9. METFORMIN [Concomitant]
     Indication: PRODUCT USED FOR UNKNOWN INDICATION
     Dosage: 500 MG, ONE IN THE AM, ONE IN THE PM
  10. CLOPIDOGREL [Concomitant]
     Indication: COAGULOPATHY
     Dosage: 75 MG, QD
  11. TAMSULOSIN [Concomitant]
     Dosage: 0.4 MG, ONE AT BEDTIME
  12. FISH OIL [Concomitant]
     Dosage: 1 G, QD

REACTIONS (2)
  - Incorrect drug administration duration [Unknown]
  - Drug ineffective [Not Recovered/Not Resolved]
